FAERS Safety Report 8607892-0 (Version None)
Quarter: 2012Q3

REPORT INFORMATION
  Report Type: 
  Country: None (occurrence: None)
  Receive Date: 20120821
  Receipt Date: 20120817
  Transmission Date: 20120928
  Serious: Yes (Hospitalization)
  Sender: FDA-Public Use
  Company Number: PHHY2012AR071245

PATIENT
  Sex: Male

DRUGS (3)
  1. INSULIN [Concomitant]
     Indication: DIABETES MELLITUS
  2. DIOVAN [Suspect]
  3. ANTICOAGULANTS [Concomitant]

REACTIONS (2)
  - LUNG DISORDER [None]
  - DYSPNOEA [None]
